FAERS Safety Report 10390156 (Version 1)
Quarter: 2014Q3

REPORT INFORMATION
  Report Type: Spontaneous
  Country: NL (occurrence: None)
  Receive Date: 20140814
  Receipt Date: 20140814
  Transmission Date: 20150326
  Serious: Yes (Death, Other)
  Sender: FDA-Public Use
  Company Number: AUR-APL-2014-08609

PATIENT
  Age: 70 Year
  Sex: Male
  Weight: 70 kg

DRUGS (6)
  1. DICLOFENAC SODIUM (DICLOFENAC SODIUM) [Concomitant]
     Active Substance: DICLOFENAC SODIUM
  2. QUETIAPINE AUROBINDO FILM-COATED TABLETS 25 MG (QUETIAPINE) [Suspect]
     Active Substance: QUETIAPINE
     Indication: HALLUCINATION
     Dates: start: 20140102
  3. CARBIDOPA, LEVODOPA AND ENTACAPONE (CARBIDOPA, ENTACAPONE, LEVODOPA) [Concomitant]
  4. LEVODOPA W/BENSERAZIDE (BENSERAZIDE, LEVODOPA) [Concomitant]
  5. ZOPICLONE (ZOPICLONE) [Concomitant]
     Active Substance: ZOPICLONE
  6. GABAPENTIN AUROBINDO CAPSULES, HARD 300 MG (GABAPENTIN) [Suspect]
     Active Substance: GABAPENTIN
     Indication: PAIN
     Dates: start: 20140721

REACTIONS (4)
  - Pain [None]
  - Syncope [None]
  - Sudden death [None]
  - General physical health deterioration [None]

NARRATIVE: CASE EVENT DATE: 20140723
